FAERS Safety Report 4574690-7 (Version None)
Quarter: 2005Q1

REPORT INFORMATION
  Report Type: 
  Country: None (occurrence: None)
  Receive Date: 20050208
  Receipt Date: 20040701
  Transmission Date: 20050727
  Serious: No
  Sender: FDA-Public Use
  Company Number: US-GLAXOSMITHKLINE-A0516782A

PATIENT
  Age: 37 Year
  Sex: Male

DRUGS (4)
  1. PAXIL [Suspect]
     Indication: DEPRESSION
     Dosage: 10MG PER DAY
     Route: 048
  2. BETAPACE [Concomitant]
  3. COUMADIN [Concomitant]
  4. LIPITOR [Concomitant]

REACTIONS (4)
  - ANXIETY [None]
  - BRUXISM [None]
  - DRUG INEFFECTIVE [None]
  - NERVOUSNESS [None]
